FAERS Safety Report 19761281 (Version 1)
Quarter: 2021Q3

REPORT INFORMATION
  Report Type: Spontaneous
  Country: US (occurrence: US)
  Receive Date: 20210826
  Receipt Date: 20210826
  Transmission Date: 20211014
  Serious: No
  Sender: FDA-Public Use
  Company Number: None

PATIENT
  Age: 53 Year
  Sex: Female

DRUGS (1)
  1. NUCALA [Suspect]
     Active Substance: MEPOLIZUMAB
     Route: 058
     Dates: start: 20200715

REACTIONS (6)
  - Muscle spasms [None]
  - Gait disturbance [None]
  - Pain [None]
  - Headache [None]
  - Dyspnoea [None]
  - Insomnia [None]

NARRATIVE: CASE EVENT DATE: 20210706
